FAERS Safety Report 23084241 (Version 1)
Quarter: 2023Q4

REPORT INFORMATION
  Report Type: Spontaneous
  Country: US (occurrence: None)
  Receive Date: 20231018
  Receipt Date: 20231018
  Transmission Date: 20240110
  Serious: Yes (Hospitalization)
  Sender: FDA-Public Use
  Company Number: None

PATIENT
  Age: 73 Year
  Sex: Male
  Weight: 83.4 kg

DRUGS (2)
  1. MELOXICAM [Suspect]
     Active Substance: MELOXICAM
     Dosage: FREQUENCY : DAILY;?
     Route: 048
     Dates: start: 20190418, end: 20221110
  2. ASPIRIN [Concomitant]
     Active Substance: ASPIRIN
     Dates: end: 20221110

REACTIONS (6)
  - Gastrointestinal haemorrhage [None]
  - Orthostatic hypotension [None]
  - Presyncope [None]
  - Nausea [None]
  - Tachycardia [None]
  - Therapy cessation [None]

NARRATIVE: CASE EVENT DATE: 20221222
